FAERS Safety Report 4591908-5 (Version None)
Quarter: 2005Q1

REPORT INFORMATION
  Report Type: 
  Country: None (occurrence: None)
  Receive Date: 20050222
  Receipt Date: 20050208
  Transmission Date: 20050727
  Serious: No
  Sender: FDA-Public Use
  Company Number: 212312

PATIENT
  Age: 44 Year
  Sex: Male
  Weight: 108.4 kg

DRUGS (3)
  1. AVASTIN [Suspect]
     Indication: COLON CANCER METASTATIC
     Dosage: 5MG/KG,Q2W, INTRAVENOUS
     Route: 042
     Dates: start: 20040706, end: 20041206
  2. 5FU (FLUORORUACIL) [Concomitant]
  3. LEUCOVORIN CALCIUM [Concomitant]

REACTIONS (1)
  - NASAL SEPTUM PERFORATION [None]
